FAERS Safety Report 7319158-X (Version None)
Quarter: 2011Q1

REPORT INFORMATION
  Report Type: 
  Country: None (occurrence: None)
  Receive Date: 20110228
  Receipt Date: 20110216
  Transmission Date: 20110831
  Serious: Yes (Other)
  Sender: FDA-Public Use
  Company Number: PHFR2010GB06065

PATIENT
  Sex: Female

DRUGS (9)
  1. CITALOPRAM HYDROBROMIDE [Concomitant]
     Dosage: UNK
  2. OESTRADIOL-OESTRIOL [Concomitant]
  3. STUGERON [Concomitant]
     Dosage: UNK
  4. VENTOLIN [Concomitant]
  5. FYBOGEL [Concomitant]
  6. HYOSCINE HBR HYT [Concomitant]
  7. CLOZARIL [Suspect]
     Indication: SCHIZOPHRENIA
     Dosage: 200 MG, UNK
     Route: 048
     Dates: start: 20031001
  8. LANSOPRAZOLE [Concomitant]
     Dosage: UNK
  9. PHYLLOCONTIN [Concomitant]

REACTIONS (5)
  - WHITE BLOOD CELL COUNT INCREASED [None]
  - CHRONIC OBSTRUCTIVE PULMONARY DISEASE [None]
  - LOWER RESPIRATORY TRACT INFECTION [None]
  - NEUTROPHIL COUNT INCREASED [None]
  - INFLUENZA LIKE ILLNESS [None]
